FAERS Safety Report 7361351-4 (Version None)
Quarter: 2011Q1

REPORT INFORMATION
  Report Type: 
  Country: None (occurrence: None)
  Receive Date: 20110318
  Receipt Date: 20110316
  Transmission Date: 20110831
  Serious: Yes (Life-Threatening, Hospitalization)
  Sender: FDA-Public Use
  Company Number: B0706076A

PATIENT
  Sex: Male

DRUGS (9)
  1. AMAREL [Concomitant]
  2. KERLONE [Concomitant]
  3. CLAMOXYL [Suspect]
     Indication: ANTIBIOTIC PROPHYLAXIS
     Dosage: 1G TWICE PER DAY
     Route: 048
     Dates: start: 20110223, end: 20110301
  4. TRANEXAMIC ACID [Suspect]
     Route: 050
     Dates: start: 20110224, end: 20110224
  5. FRACTAL [Concomitant]
  6. PREVISCAN [Concomitant]
  7. TRIATEC [Concomitant]
  8. GLUCOPHAGE [Concomitant]
  9. LASIX [Concomitant]

REACTIONS (9)
  - ATRIAL FIBRILLATION [None]
  - PRURITUS GENERALISED [None]
  - HEPATOCELLULAR INJURY [None]
  - NEUTROPHILIA [None]
  - OEDEMA PERIPHERAL [None]
  - HYPOTENSION [None]
  - DISORIENTATION [None]
  - CIRCULATORY COLLAPSE [None]
  - RENAL FAILURE ACUTE [None]
